FAERS Safety Report 12377391 (Version 2)
Quarter: 2016Q3

REPORT INFORMATION
  Report Type: Spontaneous
  Country: US (occurrence: US)
  Receive Date: 20160517
  Receipt Date: 20160901
  Transmission Date: 20161109
  Serious: No
  Sender: FDA-Public Use
  Company Number: US-RELYPSA-RLY2016000164

PATIENT
  Sex: Male

DRUGS (18)
  1. ATENOLOL. [Concomitant]
     Active Substance: ATENOLOL
  2. PRAVASTATIN SODIUM. [Concomitant]
     Active Substance: PRAVASTATIN SODIUM
  3. VELTASSA [Suspect]
     Active Substance: PATIROMER
     Indication: HYPERKALAEMIA
     Dosage: 8.4 G, QD
     Route: 048
  4. IRON [Concomitant]
     Active Substance: IRON
  5. GLIPIZIDE ER [Concomitant]
     Active Substance: GLIPIZIDE
  6. KIONEX [Concomitant]
     Active Substance: SODIUM POLYSTYRENE SULFONATE
  7. METOLAZONE. [Concomitant]
     Active Substance: METOLAZONE
  8. MIRALAX [Concomitant]
     Active Substance: POLYETHYLENE GLYCOL 3350
  9. ALLOPURINOL                        /00003302/ [Concomitant]
     Active Substance: ALLOPURINOL
  10. AMLODIPINE BESYLATE. [Concomitant]
     Active Substance: AMLODIPINE BESYLATE
  11. ASPIRIN                            /00002701/ [Concomitant]
     Active Substance: ASPIRIN
  12. TYLENOL [Concomitant]
     Active Substance: ACETAMINOPHEN
  13. CALCITRIOL. [Concomitant]
     Active Substance: CALCITRIOL
  14. HYDROCODONE BITARTRATE AND ACETAMINOPHEN [Concomitant]
     Active Substance: ACETAMINOPHEN\HYDROCODONE BITARTRATE
  15. PRILOSEC [Concomitant]
     Active Substance: OMEPRAZOLE MAGNESIUM
  16. PROBENECID. [Concomitant]
     Active Substance: PROBENECID
  17. WARFARIN SODIUM. [Concomitant]
     Active Substance: WARFARIN SODIUM
  18. LASIX [Concomitant]
     Active Substance: FUROSEMIDE

REACTIONS (1)
  - Constipation [Unknown]
